FAERS Safety Report 25651492 (Version 1)
Quarter: 2025Q3

REPORT INFORMATION
  Report Type: Spontaneous
  Country: US (occurrence: US)
  Receive Date: 20250806
  Receipt Date: 20250806
  Transmission Date: 20251021
  Serious: Yes (Life-Threatening, Hospitalization)
  Sender: MYLAN
  Company Number: US-MYLANLABS-2025M1065411

PATIENT
  Age: 86 Year
  Sex: Female

DRUGS (4)
  1. DAPSONE [Suspect]
     Active Substance: DAPSONE
     Indication: Antifungal prophylaxis
  2. NIVOLUMAB [Concomitant]
     Active Substance: NIVOLUMAB
     Indication: Renal cell carcinoma
  3. NIVOLUMAB [Concomitant]
     Active Substance: NIVOLUMAB
     Indication: Metastases to bone
  4. NIVOLUMAB [Concomitant]
     Active Substance: NIVOLUMAB
     Indication: Metastases to central nervous system

REACTIONS (2)
  - Methaemoglobinaemia [Recovering/Resolving]
  - Off label use [Unknown]
